APPROVED DRUG PRODUCT: IBU
Active Ingredient: IBUPROFEN
Strength: 100MG/5ML
Dosage Form/Route: SUSPENSION;ORAL
Application: N019784 | Product #001
Applicant: ABBOTT LABORATORIES PHARMACEUTICAL PRODUCTS DIV
Approved: Dec 18, 1989 | RLD: No | RS: No | Type: DISCN